FAERS Safety Report 20363322 (Version 1)
Quarter: 2022Q1

REPORT INFORMATION
  Report Type: Report from Study
  Country: IE (occurrence: IE)
  Receive Date: 20220121
  Receipt Date: 20220121
  Transmission Date: 20220423
  Serious: Yes (Hospitalization, Other)
  Sender: FDA-Public Use
  Company Number: IE-NOVARTISPH-NVSC2022IE009515

PATIENT
  Age: 18 Year
  Sex: Female

DRUGS (1)
  1. GILENYA [Suspect]
     Active Substance: FINGOLIMOD HYDROCHLORIDE
     Indication: Relapsing-remitting multiple sclerosis
     Dosage: 0.5 MG
     Route: 048
     Dates: start: 20220114

REACTIONS (5)
  - Bradycardia [Recovering/Resolving]
  - Heart rate irregular [Recovering/Resolving]
  - Chest pain [Unknown]
  - Chest discomfort [Unknown]
  - Anxiety [Unknown]

NARRATIVE: CASE EVENT DATE: 20220114
